FAERS Safety Report 7415447-9 (Version None)
Quarter: 2011Q2

REPORT INFORMATION
  Report Type: 
  Country: None (occurrence: None)
  Receive Date: 20110414
  Receipt Date: 20110307
  Transmission Date: 20111010
  Serious: Yes (Death, Hospitalization, Other)
  Sender: FDA-Public Use
  Company Number: JP-CELGENEUS-087-21880-10082969

PATIENT
  Sex: Female
  Weight: 37.6 kg

DRUGS (8)
  1. ALOSITOL [Concomitant]
     Dosage: 200 MILLILITER
     Route: 048
     Dates: start: 20060731, end: 20100810
  2. LUPRAC [Concomitant]
     Route: 048
     Dates: start: 20060725, end: 20100810
  3. LENADEX [Suspect]
     Indication: MULTIPLE MYELOMA
     Dosage: 4 MILLIGRAM
     Route: 048
     Dates: start: 20100803, end: 20100803
  4. PREDONINE [Concomitant]
     Indication: MULTIPLE MYELOMA
     Dosage: 25 MILLIGRAM
     Route: 048
     Dates: start: 20100531, end: 20100805
  5. MUCOSTA [Concomitant]
     Indication: PROPHYLAXIS
     Route: 048
     Dates: start: 20060726, end: 20100810
  6. REVLIMID [Suspect]
     Indication: MULTIPLE MYELOMA
     Dosage: 15 MILLIGRAM
     Route: 048
     Dates: start: 20100803, end: 20100809
  7. SOLDEM 6 [Concomitant]
     Indication: RENAL IMPAIRMENT
     Dosage: 500 MILLILITER
     Route: 041
     Dates: start: 20100730, end: 20100805
  8. ASPIRIN [Concomitant]
     Indication: PROPHYLAXIS
     Dosage: 100 MILLILITER
     Route: 048
     Dates: start: 20100805, end: 20100810

REACTIONS (3)
  - MULTIPLE MYELOMA [None]
  - HEPATIC FUNCTION ABNORMAL [None]
  - HYPERGLYCAEMIA [None]
